FAERS Safety Report 8674955 (Version 4)
Quarter: 2012Q4

REPORT INFORMATION
  Report Type: 
  Country: VE (occurrence: VE)
  Receive Date: 20120720
  Receipt Date: 20120830
  Transmission Date: 20130627
  Serious: Yes (Hospitalization, Other)
  Sender: FDA-Public Use
  Company Number: VE-PFIZER INC-2012170905

PATIENT
  Age: 59 Year
  Sex: Male

DRUGS (5)
  1. LIPITOR [Suspect]
     Indication: HYPERCHOLESTEROLAEMIA
     Dosage: 40 mg, 1x/day
     Route: 048
     Dates: start: 201102
  2. ADALAT OROS [Concomitant]
     Dosage: 30 mg, 1x/day
     Route: 048
  3. CARVEDILOL [Concomitant]
     Dosage: 25 mg, 1x/day
     Route: 048
  4. AMARYL [Concomitant]
     Dosage: 5 mg, 1x/day
     Route: 048
  5. PLAVIX [Concomitant]
     Dosage: 75 mg, 1x/day
     Route: 048

REACTIONS (2)
  - Cough [Recovered/Resolved]
  - Coronary artery disease [Recovered/Resolved]
